FAERS Safety Report 5392861-7 (Version None)
Quarter: 2007Q3

REPORT INFORMATION
  Report Type: 
  Country: None (occurrence: None)
  Receive Date: 20070720
  Receipt Date: 20070710
  Transmission Date: 20080115
  Serious: Yes (Other)
  Sender: FDA-Public Use
  Company Number: BR-PFIZER INC-2007057637

PATIENT
  Sex: Female

DRUGS (7)
  1. FRONTAL [Suspect]
     Indication: ANXIETY
     Dosage: DAILY DOSE:1.5MG
     Route: 048
  2. FRONTAL [Suspect]
     Indication: PANIC REACTION
  3. SERTRALINE [Concomitant]
     Route: 048
  4. ALPRAZOLAM [Concomitant]
     Route: 048
  5. LEXOTAN [Concomitant]
     Route: 048
  6. METFORMIN HCL [Concomitant]
     Route: 048
  7. DIAMICRON MR [Concomitant]
     Route: 048
     Dates: end: 20070101

REACTIONS (3)
  - ANXIETY [None]
  - DRUG INEFFECTIVE [None]
  - PHOBIA [None]
